FAERS Safety Report 4736703-9 (Version None)
Quarter: 2005Q3

REPORT INFORMATION
  Report Type: 
  Country: None (occurrence: None)
  Receive Date: 20050804
  Receipt Date: 20050721
  Transmission Date: 20060218
  Serious: Yes (Hospitalization)
  Sender: FDA-Public Use
  Company Number: US-2005-004337

PATIENT
  Age: 68 Year
  Sex: Female

DRUGS (3)
  1. BETASERON [Suspect]
     Indication: MULTIPLE SCLEROSIS
     Dosage: 8 MIU, EVERY 2D, SUBCUTANEOUS
     Route: 058
     Dates: start: 20041215, end: 20050301
  2. BETASERON [Suspect]
     Indication: MULTIPLE SCLEROSIS
     Dosage: 8 MIU, EVERY 2D, SUBCUTANEOUS
     Route: 058
     Dates: start: 20050301
  3. INSULIN [Concomitant]

REACTIONS (5)
  - ASTHENIA [None]
  - FALL [None]
  - HEAD INJURY [None]
  - IRON DEFICIENCY ANAEMIA [None]
  - SUBDURAL HAEMATOMA [None]
